FAERS Safety Report 4552461-5 (Version None)
Quarter: 2005Q1

REPORT INFORMATION
  Report Type: 
  Country: None (occurrence: None)
  Receive Date: 20050114
  Receipt Date: 20040617
  Transmission Date: 20050727
  Serious: No
  Sender: FDA-Public Use
  Company Number: US-BRISTOL-MYERS SQUIBB COMPANY-12620639

PATIENT
  Age: 50 Year
  Sex: Female
  Weight: 62 kg

DRUGS (7)
  1. PLATINOL-AQ [Suspect]
     Indication: OVARIAN CANCER
     Dosage: INITIAL DOSE: 28-APR-2004
     Route: 042
     Dates: start: 20040609, end: 20040609
  2. DECADRON [Concomitant]
     Indication: PREMEDICATION
     Dosage: THE NIGHT BEFORE, THE DAY OF, AND THE EVENING OF TREATMENT
     Route: 048
  3. BENADRYL [Concomitant]
     Indication: PREMEDICATION
     Dosage: THE NIGHT BEFORE, THE DAY OF, AND THE EVENING OF TREATMENT
     Route: 048
  4. PEPCID [Concomitant]
     Indication: PREMEDICATION
     Dosage: THE NIGHT BEFORE, THE DAY OF, AND THE EVENING OF TREATMENT
     Route: 048
  5. DECADRON [Concomitant]
     Dosage: IN THE OFFICE.
     Route: 042
  6. ALOXI [Concomitant]
     Indication: PREMEDICATION
     Dosage: IN THE OFFICE.
     Route: 042
  7. TAXOTERE [Concomitant]
     Dosage: 1 1/2 HOURS PRIOR TO THE DOSES OF CISPLATN
     Route: 042

REACTIONS (1)
  - EXTRAVASATION [None]
